FAERS Safety Report 10195444 (Version 1)
Quarter: 2014Q2

REPORT INFORMATION
  Report Type: Spontaneous
  Country: US (occurrence: US)
  Receive Date: 20140526
  Receipt Date: 20140526
  Transmission Date: 20141212
  Serious: No
  Sender: FDA-Public Use
  Company Number: US-009507513-1405USA012073

PATIENT
  Sex: Male

DRUGS (2)
  1. ASMANEX TWISTHALER [Suspect]
     Dosage: 1 PUFF, TWICE DAILY
     Route: 055
     Dates: start: 20140521
  2. ASMANEX TWISTHALER [Suspect]
     Dosage: UNK

REACTIONS (3)
  - Drug dose omission [Unknown]
  - Device malfunction [Unknown]
  - No adverse event [Unknown]
